FAERS Safety Report 4642785-5 (Version None)
Quarter: 2005Q2

REPORT INFORMATION
  Report Type: 
  Country: None (occurrence: None)
  Receive Date: 20050421
  Receipt Date: 20050412
  Transmission Date: 20051028
  Serious: Yes (Other)
  Sender: FDA-Public Use
  Company Number: PHBS2005US05267

PATIENT
  Age: 41 Year
  Sex: Male

DRUGS (3)
  1. CLOFAZIMINE(CLOFAZIMINE) UNKNOWN [Suspect]
     Indication: LEPROMATOUS LEPROSY
  2. RIFAMPICIN [Suspect]
  3. DAPSONE [Suspect]

REACTIONS (2)
  - NODULAR VASCULITIS [None]
  - OEDEMA PERIPHERAL [None]
